FAERS Safety Report 6865759-2 (Version None)
Quarter: 2010Q3

REPORT INFORMATION
  Report Type: 
  Country: None (occurrence: None)
  Receive Date: 20100721
  Receipt Date: 20080701
  Transmission Date: 20110219
  Serious: No
  Sender: FDA-Public Use
  Company Number: US-PFIZER INC-2008038510

PATIENT
  Sex: Male
  Weight: 72.6 kg

DRUGS (4)
  1. CHANTIX [Suspect]
     Indication: SMOKING CESSATION THERAPY
     Dates: start: 20080201
  2. ZYPREXA [Concomitant]
  3. ZOLOFT [Concomitant]
  4. ATENOLOL [Concomitant]

REACTIONS (1)
  - DRUG SCREEN POSITIVE [None]
